FAERS Safety Report 5048440-4 (Version None)
Quarter: 2006Q3

REPORT INFORMATION
  Report Type: 
  Country: None (occurrence: None)
  Receive Date: 20060703
  Receipt Date: 20060619
  Transmission Date: 20061208
  Serious: Yes (Death)
  Sender: FDA-Public Use
  Company Number: 23100292

PATIENT

DRUGS (1)
  1. ARGATROBAN [Suspect]
     Dosage: 250 MG/ML ONCE IV
     Route: 042

REACTIONS (4)
  - ACTIVATED PARTIAL THROMBOPLASTIN TIME PROLONGED [None]
  - HAEMORRHAGE [None]
  - INCORRECT DRUG ADMINISTRATION RATE [None]
  - INFUSION SITE HAEMORRHAGE [None]
